FAERS Safety Report 12237438 (Version 1)
Quarter: 2016Q2

REPORT INFORMATION
  Report Type: Spontaneous
  Country: US (occurrence: None)
  Receive Date: 20160404
  Receipt Date: 20160404
  Transmission Date: 20160815
  Serious: Yes (Life-Threatening)
  Sender: FDA-Public Use
  Company Number: None

PATIENT
  Age: 46 Year
  Sex: Female

DRUGS (3)
  1. NUVARING [Suspect]
     Active Substance: ETHINYL ESTRADIOL\ETONOGESTREL
     Indication: HORMONE REPLACEMENT THERAPY
     Dosage: 1 RING MONTHLY VAGINAL
     Route: 067
     Dates: start: 20151120, end: 20160328
  2. NUVARING [Suspect]
     Active Substance: ETHINYL ESTRADIOL\ETONOGESTREL
     Indication: CONTRACEPTION
     Dosage: 1 RING MONTHLY VAGINAL
     Route: 067
     Dates: start: 20151120, end: 20160328
  3. MOTRIN [Concomitant]
     Active Substance: IBUPROFEN

REACTIONS (2)
  - Peripheral swelling [None]
  - Skin discolouration [None]

NARRATIVE: CASE EVENT DATE: 20160314
